FAERS Safety Report 5590800-7 (Version None)
Quarter: 2008Q1

REPORT INFORMATION
  Report Type: 
  Country: None (occurrence: None)
  Receive Date: 20080110
  Receipt Date: 20071210
  Transmission Date: 20080703
  Serious: Yes (Hospitalization)
  Sender: FDA-Public Use
  Company Number: 30241

PATIENT
  Age: 69 Year
  Sex: Male

DRUGS (10)
  1. ACETAMINOPHEN [Suspect]
     Indication: ARTHRITIS
     Dosage: 500 MG/ 6-8 PER DAY/ ORAL
     Route: 048
     Dates: start: 20061006, end: 20061206
  2. ALLOPURINOL [Concomitant]
  3. VASOTEC [Concomitant]
  4. WARFARIN KLOR-CON [Concomitant]
  5. ISOSORBMONO [Concomitant]
  6. NEXIUM [Concomitant]
  7. LEVAQUIN [Concomitant]
  8. LASIX [Concomitant]
  9. LIPITOR [Concomitant]
  10. VASOTEC [Concomitant]

REACTIONS (8)
  - CHOLECYSTITIS ACUTE [None]
  - GASTRIC ULCER [None]
  - HAEMORRHAGIC ANAEMIA [None]
  - HEPATOCELLULAR INJURY [None]
  - LIVER ABSCESS [None]
  - RENAL FAILURE ACUTE [None]
  - RENAL FAILURE CHRONIC [None]
  - UPPER GASTROINTESTINAL HAEMORRHAGE [None]
